FAERS Safety Report 8994528 (Version 1)
Quarter: 2013Q1

REPORT INFORMATION
  Report Type: Spontaneous
  Country: US (occurrence: US)
  Receive Date: 20130102
  Receipt Date: 20130102
  Transmission Date: 20140127
  Serious: No
  Sender: FDA-Public Use
  Company Number: US-AMGEN-USASP2012079197

PATIENT
  Age: 54 Year
  Sex: Male

DRUGS (1)
  1. ENBREL [Suspect]
     Indication: ANKYLOSING SPONDYLITIS
     Dosage: 50 MG, QWK
     Dates: start: 20110601, end: 20121025

REACTIONS (3)
  - Nephrolithiasis [Not Recovered/Not Resolved]
  - Prostatitis [Not Recovered/Not Resolved]
  - Urinary tract inflammation [Not Recovered/Not Resolved]
